FAERS Safety Report 17040974 (Version 2)
Quarter: 2019Q4

REPORT INFORMATION
  Report Type: Spontaneous
  Country: RU (occurrence: RU)
  Receive Date: 20191118
  Receipt Date: 20191219
  Transmission Date: 20200122
  Serious: Yes (Death, Other)
  Sender: FDA-Public Use
  Company Number: RU-ALEXION PHARMACEUTICALS INC.-A201917591

PATIENT

DRUGS (3)
  1. KANUMA [Suspect]
     Active Substance: SEBELIPASE ALFA
     Indication: LYSOSOMAL ACID LIPASE DEFICIENCY
     Dosage: UNK
     Route: 065
     Dates: start: 20191011
  2. KANUMA [Suspect]
     Active Substance: SEBELIPASE ALFA
     Dosage: 5 MG/KG, UNK
     Route: 042
  3. KANUMA [Suspect]
     Active Substance: SEBELIPASE ALFA
     Dosage: 3 MG/KG, UNK
     Route: 042
     Dates: start: 20191101

REACTIONS (17)
  - Blood fibrinogen decreased [Unknown]
  - Cytomegalovirus test positive [Unknown]
  - Bilirubin conjugated increased [Unknown]
  - Protein total decreased [Unknown]
  - Red blood cell count decreased [Unknown]
  - Activated partial thromboplastin time prolonged [Unknown]
  - International normalised ratio decreased [Unknown]
  - Multiple organ dysfunction syndrome [Fatal]
  - Alanine aminotransferase increased [Unknown]
  - Aspartate aminotransferase increased [Unknown]
  - White blood cell count decreased [Unknown]
  - Platelet count decreased [Unknown]
  - Rhesus antigen negative [Unknown]
  - Blood bilirubin increased [Unknown]
  - Blood creatinine increased [Unknown]
  - Haemoglobin decreased [Unknown]
  - Antithrombin III decreased [Unknown]
